FAERS Safety Report 23539110 (Version 4)
Quarter: 2024Q2

REPORT INFORMATION
  Report Type: Report from Study
  Country: EG (occurrence: EG)
  Receive Date: 20240219
  Receipt Date: 20240425
  Transmission Date: 20240716
  Serious: Yes (Hospitalization)
  Sender: FDA-Public Use
  Company Number: EG-BoehringerIngelheim-2024-BI-008093

PATIENT
  Age: 76 Year
  Sex: Female
  Weight: 125 kg

DRUGS (9)
  1. OFEV [Suspect]
     Active Substance: NINTEDANIB
     Indication: Pulmonary fibrosis
     Route: 048
     Dates: start: 20230601, end: 20231206
  2. OFEV [Suspect]
     Active Substance: NINTEDANIB
     Route: 048
     Dates: start: 20231207, end: 20240420
  3. Examide 20 mg, [Concomitant]
     Indication: Diuretic therapy
     Dates: start: 20220213
  4. Altiazem 60 mg, [Concomitant]
     Indication: Cardiac disorder
     Dates: start: 20220213
  5. Gardovas 5 mg, [Concomitant]
     Indication: Cardiac disorder
     Dates: start: 20220213
  6. Rivarospire 10 mg, [Concomitant]
     Indication: Thrombosis
     Dates: start: 20220213
  7. Oxazolid 600 mg [Concomitant]
     Indication: Antibiotic therapy
     Dates: start: 20240213
  8. Cialis 20 mg, [Concomitant]
     Indication: Product used for unknown indication
     Dosage: HALF
     Dates: start: 20220213
  9. Solupred 20 mg [Concomitant]
     Indication: Pulmonary fibrosis
     Dates: start: 20220213

REACTIONS (1)
  - Oxygen saturation decreased [Recovered/Resolved]

NARRATIVE: CASE EVENT DATE: 20231101
